FAERS Safety Report 17150560 (Version 1)
Quarter: 2019Q4

REPORT INFORMATION
  Report Type: Spontaneous
  Country: US (occurrence: US)
  Receive Date: 20191212
  Receipt Date: 20191212
  Transmission Date: 20200122
  Serious: Yes (Other)
  Sender: FDA-Public Use
  Company Number: None

PATIENT
  Age: 25 Year
  Sex: Female
  Weight: 61.69 kg

DRUGS (2)
  1. NEXPLANON [Suspect]
     Active Substance: ETONOGESTREL
     Indication: CONTRACEPTION
     Dates: start: 20191122
  2. NEXPLANON [Suspect]
     Active Substance: ETONOGESTREL
     Dates: start: 20191122

REACTIONS (2)
  - Urticaria [None]
  - Alcohol use [None]

NARRATIVE: CASE EVENT DATE: 20191208
